FAERS Safety Report 9848700 (Version 2)
Quarter: 2014Q1

REPORT INFORMATION
  Report Type: Report from Study
  Country: PE (occurrence: PE)
  Receive Date: 20140128
  Receipt Date: 20140204
  Transmission Date: 20141002
  Serious: Yes (Death, Hospitalization)
  Sender: FDA-Public Use
  Company Number: PE-SA-2014SA010725

PATIENT
  Age: 69 Year
  Sex: Female

DRUGS (10)
  1. DOCETAXEL [Suspect]
     Indication: NON-SMALL CELL LUNG CANCER
     Route: 042
     Dates: start: 20130808, end: 20130808
  2. DOCETAXEL [Suspect]
     Indication: NON-SMALL CELL LUNG CANCER
     Route: 042
     Dates: start: 20131030, end: 20131030
  3. CHLORPHENIRAMINE [Concomitant]
     Route: 042
     Dates: start: 20130808, end: 20131030
  4. ONDANSETRON [Concomitant]
     Route: 042
     Dates: start: 20130808, end: 20131030
  5. RANITIDINE [Concomitant]
     Route: 065
     Dates: start: 20130829
  6. RANITIDINE [Concomitant]
     Route: 065
     Dates: start: 20130808
  7. RANITIDINE [Concomitant]
     Route: 065
     Dates: start: 20130918
  8. RANITIDINE [Concomitant]
     Route: 065
     Dates: start: 20131009
  9. RANITIDINE [Concomitant]
     Route: 065
     Dates: start: 20131030
  10. ACETAMINOPHEN [Concomitant]
     Route: 065
     Dates: start: 20130809

REACTIONS (2)
  - Disorientation [Not Recovered/Not Resolved]
  - Sudden death [Fatal]
